FAERS Safety Report 22150477 (Version 2)
Quarter: 2023Q2

REPORT INFORMATION
  Report Type: Spontaneous
  Country: US (occurrence: US)
  Receive Date: 20230329
  Receipt Date: 20230411
  Transmission Date: 20230722
  Serious: Yes (Life-Threatening, Hospitalization, Other)
  Sender: FDA-Public Use
  Company Number: AT-ALKEM LABORATORIES LIMITED-AT-ALKEM-2023-03325

PATIENT
  Age: 94 Year
  Sex: Male

DRUGS (1)
  1. DABIGATRAN ETEXILATE MESYLATE [Suspect]
     Active Substance: DABIGATRAN ETEXILATE MESYLATE
     Indication: Atrial fibrillation
     Dosage: 150 MILLIGRAM, BID (TWICE A DAY)
     Route: 048

REACTIONS (5)
  - Brain herniation [Recovering/Resolving]
  - Subdural haematoma [Unknown]
  - Haemorrhage intracranial [Unknown]
  - Cerebral mass effect [Recovering/Resolving]
  - Drug level increased [Recovering/Resolving]
